FAERS Safety Report 13858357 (Version 1)
Quarter: 2017Q3

REPORT INFORMATION
  Report Type: Spontaneous
  Country: US (occurrence: US)
  Receive Date: 20170810
  Receipt Date: 20170810
  Transmission Date: 20171127
  Serious: Yes (Hospitalization)
  Sender: FDA-Public Use
  Company Number: None

PATIENT
  Sex: Female
  Weight: 59.85 kg

DRUGS (2)
  1. SEROQUEL [Concomitant]
     Active Substance: QUETIAPINE FUMARATE
  2. SERTRALINE [Suspect]
     Active Substance: SERTRALINE HYDROCHLORIDE
     Indication: SCHIZOAFFECTIVE DISORDER
     Dosage: ?          QUANTITY:20 TABLET(S);?
     Route: 048

REACTIONS (13)
  - Delusion [None]
  - Anxiety [None]
  - Condition aggravated [None]
  - Retching [None]
  - Feeling abnormal [None]
  - Pain [None]
  - Muscle spasms [None]
  - Headache [None]
  - Tremor [None]
  - Vomiting [None]
  - Abnormal behaviour [None]
  - Dysentery [None]
  - Nausea [None]

NARRATIVE: CASE EVENT DATE: 20170808
